FAERS Safety Report 10822913 (Version 1)
Quarter: 2015Q1

REPORT INFORMATION
  Report Type: Report from Study
  Country: US (occurrence: US)
  Receive Date: 20150218
  Receipt Date: 20150218
  Transmission Date: 20150721
  Serious: No
  Sender: FDA-Public Use
  Company Number: US-ABBVIE-14K-163-1309835-00

PATIENT
  Age: 54 Year
  Sex: Male

DRUGS (2)
  1. FLU SHOT [Suspect]
     Active Substance: INFLUENZA VIRUS VACCINE
     Indication: PRODUCT USED FOR UNKNOWN INDICATION
     Route: 065
  2. HUMIRA [Suspect]
     Active Substance: ADALIMUMAB
     Indication: COLITIS ULCERATIVE
     Route: 065

REACTIONS (7)
  - Pain [Not Recovered/Not Resolved]
  - Respiratory tract congestion [Unknown]
  - Wheezing [Unknown]
  - Headache [Unknown]
  - Rash [Unknown]
  - Influenza [Unknown]
  - Chest discomfort [Unknown]

NARRATIVE: CASE EVENT DATE: 201410
